FAERS Safety Report 8858614 (Version 1)
Quarter: 2012Q4

REPORT INFORMATION
  Report Type: 
  Country: IE (occurrence: IE)
  Receive Date: 20121024
  Receipt Date: 20121024
  Transmission Date: 20130627
  Serious: Yes (Other)
  Sender: FDA-Public Use
  Company Number: IE-PFIZER INC-2012264790

PATIENT
  Age: 83 Year
  Sex: Male

DRUGS (1)
  1. EFEXOR XL [Suspect]

REACTIONS (2)
  - Parkinson^s disease [Unknown]
  - Dysphagia [Unknown]
